FAERS Safety Report 13967875 (Version 1)
Quarter: 2017Q3

REPORT INFORMATION
  Report Type: Spontaneous
  Country: US (occurrence: US)
  Receive Date: 20170914
  Receipt Date: 20170914
  Transmission Date: 20171128
  Serious: No
  Sender: FDA-Public Use
  Company Number: US-BAYER-2017-173981

PATIENT
  Age: 27 Year
  Sex: Male

DRUGS (1)
  1. LORATADINE. [Suspect]
     Active Substance: LORATADINE

REACTIONS (4)
  - Pruritus [Recovered/Resolved]
  - Skin irritation [Recovered/Resolved]
  - Drug ineffective [None]
  - Urticaria [Recovered/Resolved]
